FAERS Safety Report 10390528 (Version 1)
Quarter: 2014Q3

REPORT INFORMATION
  Report Type: Spontaneous
  Country: CN (occurrence: CN)
  Receive Date: 20140818
  Receipt Date: 20140818
  Transmission Date: 20150326
  Serious: Yes (Hospitalization, Other)
  Sender: FDA-Public Use
  Company Number: CN-GILEAD-2014-0111854

PATIENT
  Sex: Female

DRUGS (2)
  1. HEPTODIN [Suspect]
     Active Substance: LAMIVUDINE
     Indication: HEPATITIS B
     Dosage: 1 DF, QD
     Route: 048
     Dates: start: 2012
  2. HEPSERA [Suspect]
     Active Substance: ADEFOVIR DIPIVOXIL
     Indication: HEPATITIS B
     Dosage: 1 DF, QD
     Route: 048
     Dates: start: 201301

REACTIONS (4)
  - Drug resistance [Unknown]
  - Drug ineffective [Not Recovered/Not Resolved]
  - Transaminases increased [Recovered/Resolved]
  - Viral load increased [Unknown]

NARRATIVE: CASE EVENT DATE: 201301
